FAERS Safety Report 8286510-8 (Version None)
Quarter: 2012Q2

REPORT INFORMATION
  Report Type: 
  Country: None (occurrence: None)
  Receive Date: 20120416
  Receipt Date: 20120410
  Transmission Date: 20120825
  Serious: Yes (Hospitalization)
  Sender: FDA-Public Use
  Company Number: US-PFIZER INC-2012090511

PATIENT
  Sex: Male
  Weight: 71.655 kg

DRUGS (2)
  1. VIAGRA [Suspect]
     Indication: BLOOD CHOLESTEROL DECREASED
     Dosage: 100 MG, AS NEEDED
     Dates: start: 20110101
  2. HYDROCHLOROTHIAZIDE [Concomitant]
     Indication: HYPERTENSION
     Dosage: 25 MG, DAILY

REACTIONS (1)
  - HEPATIC NEOPLASM [None]
